FAERS Safety Report 4879617-6 (Version None)
Quarter: 2006Q1

REPORT INFORMATION
  Report Type: 
  Country: None (occurrence: None)
  Receive Date: 20060113
  Receipt Date: 20050722
  Transmission Date: 20060701
  Serious: No
  Sender: FDA-Public Use
  Company Number: US-BRISTOL-MYERS SQUIBB COMPANY-13048111

PATIENT
  Sex: Female

DRUGS (2)
  1. IFEX [Suspect]
  2. MESNA [Suspect]

REACTIONS (1)
  - ABDOMINAL PAIN UPPER [None]
